FAERS Safety Report 5637236-8 (Version None)
Quarter: 2008Q1

REPORT INFORMATION
  Report Type: 
  Country: None (occurrence: None)
  Receive Date: 20080225
  Receipt Date: 20070330
  Transmission Date: 20080703
  Serious: No
  Sender: FDA-Public Use
  Company Number: US-BRISTOL-MYERS SQUIBB COMPANY-13734124

PATIENT
  Age: 45 Year
  Sex: Female
  Weight: 102 kg

DRUGS (6)
  1. KENALOG [Suspect]
     Indication: BACK PAIN
     Dates: start: 20060901
  2. HYDROCODONE BITARTRATE [Concomitant]
  3. CELEBREX [Concomitant]
  4. CYMBALTA [Concomitant]
  5. SYNTHROID [Concomitant]
  6. TESTOSTERONE [Concomitant]

REACTIONS (1)
  - VAGINAL HAEMORRHAGE [None]
